FAERS Safety Report 9165271 (Version 2)
Quarter: 2013Q1

REPORT INFORMATION
  Report Type: Spontaneous
  Country: GB (occurrence: None)
  Receive Date: 20130227
  Receipt Date: 20130315
  Transmission Date: 20140127
  Serious: Yes (Other)
  Sender: FDA-Public Use
  Company Number: SYM-2013-00899

PATIENT
  Age: 38 Year
  Sex: Female

DRUGS (5)
  1. METRONIDAZOLE [Suspect]
     Indication: PRODUCT USED FOR UNKNOWN INDICATION
     Route: 042
     Dates: start: 20130130
  2. LEVOTHYROXINE (LEVOTHYROXINE) [Concomitant]
  3. CHAMPIX (VARENICLINE TARTRATE) (VARENICLINE TARTRATE) [Concomitant]
  4. CLINDAMYCIN PHOSPHATE (CLINDAMYCIN PHOSPHATE) (CLINDAMYCIN PHOSPHATE) [Concomitant]
  5. CO-AMOXICLAV (AUGMENTIN /00756801/) (AMOXICILLIN SODIUM, CLAVULANATE POTASSIUM) [Concomitant]

REACTIONS (3)
  - Urticaria [None]
  - Pruritus [None]
  - Rash [None]
